FAERS Safety Report 17980684 (Version 1)
Quarter: 2020Q3

REPORT INFORMATION
  Report Type: Spontaneous
  Country: PL (occurrence: PL)
  Receive Date: 20200704
  Receipt Date: 20200704
  Transmission Date: 20201103
  Serious: Yes (Congenital Anomaly)
  Sender: FDA-Public Use
  Company Number: PL-TEVA-2020-PL-1794628

PATIENT
  Age: 38 Year
  Sex: Female
  Weight: 52 kg

DRUGS (7)
  1. NYSTATYNA TEVA, 2 400 000 J.M./5 G, GRANULAT DO SPORZADZENIA ZAWIESINY [Concomitant]
     Indication: FEBRILE NEUTROPENIA
     Dates: start: 20170811, end: 20170814
  2. ACCOFIL [Concomitant]
     Active Substance: FILGRASTIM
     Indication: FEBRILE NEUTROPENIA
     Dosage: DOSE: 48 MILLION UNITS
     Route: 058
     Dates: start: 20170811, end: 20170814
  3. PERTUZUMAB. [Suspect]
     Active Substance: PERTUZUMAB
     Indication: BREAST CANCER FEMALE
     Dosage: 840 MG
     Route: 042
     Dates: start: 20170802, end: 20170802
  4. FLUCONAZOLE. [Concomitant]
     Active Substance: FLUCONAZOLE
     Indication: FEBRILE NEUTROPENIA
     Dosage: 50 MG
     Route: 048
     Dates: start: 20170811, end: 20170815
  5. DOCETAXEL. [Suspect]
     Active Substance: DOCETAXEL
     Indication: BREAST CANCER FEMALE
     Dosage: 113 MG
     Route: 042
     Dates: start: 20170802, end: 20170802
  6. TRASTUZUMAB. [Suspect]
     Active Substance: TRASTUZUMAB
     Indication: BREAST CANCER FEMALE
     Dosage: 4.6 MG
     Route: 042
     Dates: start: 20170802, end: 20170802
  7. CIPRONEX [Concomitant]
     Active Substance: CIPROFLOXACIN
     Indication: FEBRILE NEUTROPENIA
     Dosage: 500 MG
     Route: 048
     Dates: start: 20170811, end: 20170815

REACTIONS (1)
  - Abortion spontaneous [Recovered/Resolved]

NARRATIVE: CASE EVENT DATE: 20170828
